FAERS Safety Report 8298698-3 (Version None)
Quarter: 2012Q2

REPORT INFORMATION
  Report Type: 
  Country: None (occurrence: None)
  Receive Date: 20120419
  Receipt Date: 20120410
  Transmission Date: 20120825
  Serious: Yes (Other)
  Sender: FDA-Public Use
  Company Number: US-ASTRAZENECA-2012SE23553

PATIENT
  Age: 51 Year
  Sex: Male

DRUGS (2)
  1. LISINOPRIL [Suspect]
     Route: 048
  2. HYDROCHLOROTHIAZIDE [Suspect]

REACTIONS (2)
  - DRUG ERUPTION [None]
  - LYMPHOCYTE MORPHOLOGY ABNORMAL [None]
